FAERS Safety Report 9038927 (Version 1)
Quarter: 2013Q1

REPORT INFORMATION
  Report Type: Spontaneous
  Country: US (occurrence: US)
  Receive Date: 20130129
  Receipt Date: 20130129
  Transmission Date: 20140127
  Serious: Yes (Other)
  Sender: FDA-Public Use
  Company Number: US-ABBOTT-12P-163-0931155-00

PATIENT
  Age: 50 Year
  Sex: Female

DRUGS (3)
  1. HUMIRA 40 MG/0.8 ML PEN [Suspect]
     Indication: ANKYLOSING SPONDYLITIS
     Dates: start: 2010, end: 2012
  2. REMICADE [Suspect]
     Indication: ANKYLOSING SPONDYLITIS
     Dates: start: 2012
  3. METHOTREXATE [Suspect]
     Indication: ANKYLOSING SPONDYLITIS

REACTIONS (3)
  - Bladder cancer [Not Recovered/Not Resolved]
  - Lymphoma [Not Recovered/Not Resolved]
  - Drug ineffective [Not Recovered/Not Resolved]
